FAERS Safety Report 10667052 (Version 1)
Quarter: 2014Q4

REPORT INFORMATION
  Report Type: Report from Study
  Country: US (occurrence: None)
  Receive Date: 20141218
  Receipt Date: 20141218
  Transmission Date: 20150529
  Serious: Yes (Death)
  Sender: FDA-Public Use
  Company Number: 2013SA005567

PATIENT
  Age: 65 Year
  Sex: Female

DRUGS (3)
  1. BACTRIM [Concomitant]
     Active Substance: SULFAMETHOXAZOLE\TRIMETHOPRIM
  2. AUBAGIO [Suspect]
     Active Substance: TERIFLUNOMIDE
     Indication: MULTIPLE SCLEROSIS
     Route: 048
     Dates: start: 20130101
  3. INTERFERON BETA NOS [Concomitant]
     Active Substance: INTERFERON BETA

REACTIONS (7)
  - Cystitis [None]
  - Fatigue [None]
  - Musculoskeletal stiffness [None]
  - Urinary tract infection [None]
  - Decreased appetite [None]
  - Nausea [None]
  - Abdominal pain upper [None]

NARRATIVE: CASE EVENT DATE: 201301
